FAERS Safety Report 6308527-2 (Version None)
Quarter: 2009Q3

REPORT INFORMATION
  Report Type: 
  Country: None (occurrence: None)
  Receive Date: 20090813
  Receipt Date: 20090730
  Transmission Date: 20100115
  Serious: Yes (Death)
  Sender: FDA-Public Use
  Company Number: IR-MYLANLABS-2009S1013460

PATIENT

DRUGS (3)
  1. BUPIVACAINE [Suspect]
     Dates: start: 20090101
  2. BUPIVACAINE [Suspect]
     Dates: start: 20090101
  3. FENTANYL [Suspect]

REACTIONS (2)
  - ARRHYTHMIA [None]
  - PRODUCT QUALITY ISSUE [None]
